FAERS Safety Report 14065760 (Version 2)
Quarter: 2017Q4

REPORT INFORMATION
  Report Type: Spontaneous
  Country: GB (occurrence: GB)
  Receive Date: 20171009
  Receipt Date: 20171204
  Transmission Date: 20180321
  Serious: Yes (Life-Threatening, Hospitalization, Disabling, Other)
  Sender: FDA-Public Use
  Company Number: GB-JNJFOC-20171004326

PATIENT
  Age: 65 Year
  Sex: Male

DRUGS (7)
  1. DIGOXIN. [Concomitant]
     Active Substance: DIGOXIN
     Indication: ATRIAL FIBRILLATION
     Dosage: ONCE IN THE MORNING
     Route: 065
  2. RIVAROXABAN [Concomitant]
     Active Substance: RIVAROXABAN
     Indication: PRODUCT USED FOR UNKNOWN INDICATION
     Dosage: ONCE IN THE MORNING
     Route: 065
  3. TREVICTA [Suspect]
     Active Substance: PALIPERIDONE PALMITATE
     Indication: PRODUCT USED FOR UNKNOWN INDICATION
     Route: 030
     Dates: end: 20170906
  4. PREDNISOLONE. [Concomitant]
     Active Substance: PREDNISOLONE
     Indication: COLITIS
     Route: 054
  5. BISOPROLOL [Concomitant]
     Active Substance: BISOPROLOL
     Indication: ATRIAL FIBRILLATION
     Dosage: ONCE IN THE MORNING
     Route: 065
  6. FUROSEMIDE. [Concomitant]
     Active Substance: FUROSEMIDE
     Indication: PRODUCT USED FOR UNKNOWN INDICATION
     Dosage: ONCE IN THE MORNING
     Route: 065
  7. ATORVASTATIN [Concomitant]
     Active Substance: ATORVASTATIN
     Indication: PRODUCT USED FOR UNKNOWN INDICATION
     Dosage: ONCE AT NIGHT
     Route: 065

REACTIONS (5)
  - Myocardial infarction [Recovered/Resolved with Sequelae]
  - Pulmonary embolism [Recovered/Resolved with Sequelae]
  - Hyperkalaemia [Recovered/Resolved with Sequelae]
  - Pulseless electrical activity [Recovered/Resolved with Sequelae]
  - Portal vein thrombosis [Recovered/Resolved with Sequelae]

NARRATIVE: CASE EVENT DATE: 201709
